FAERS Safety Report 12245628 (Version 1)
Quarter: 2016Q2

REPORT INFORMATION
  Report Type: Spontaneous
  Country: US (occurrence: US)
  Receive Date: 20160407
  Receipt Date: 20160407
  Transmission Date: 20160815
  Serious: No
  Sender: FDA-Public Use
  Company Number: US-GLAXOSMITHKLINE-US2016GSK042244

PATIENT
  Sex: Male

DRUGS (1)
  1. ROPINIROLE HYDROCHLORIDE TABLET [Suspect]
     Active Substance: ROPINIROLE HYDROCHLORIDE
     Indication: RESTLESS LEGS SYNDROME
     Dosage: 1 MG UNK, U
     Dates: start: 2014

REACTIONS (2)
  - Drug hypersensitivity [Unknown]
  - Urticaria [Unknown]
